FAERS Safety Report 20924406 (Version 1)
Quarter: 2022Q2

REPORT INFORMATION
  Report Type: Spontaneous
  Country: US (occurrence: None)
  Receive Date: 20220603
  Receipt Date: 20220603
  Transmission Date: 20220721
  Serious: Yes (Other)
  Sender: FDA-Public Use
  Company Number: None

PATIENT
  Age: 30 Year
  Sex: Female
  Weight: 111.13 kg

DRUGS (2)
  1. DIMETHYL SULFOXIDE\ITRACONAZOLE\POLYSORBATE 80\TEA TREE OIL\UNDECYLENI [Suspect]
     Active Substance: DIMETHYL SULFOXIDE\ITRACONAZOLE\POLYSORBATE 80\TEA TREE OIL\UNDECYLENIC ACID\UREA
     Indication: Onychomycosis
     Route: 061
     Dates: start: 20200111, end: 20210113
  2. VIT DAILY [Concomitant]

REACTIONS (1)
  - Hypersensitivity [None]

NARRATIVE: CASE EVENT DATE: 20210115
